FAERS Safety Report 6409961-2 (Version None)
Quarter: 2009Q4

REPORT INFORMATION
  Report Type: 
  Country: None (occurrence: None)
  Receive Date: 20091021
  Receipt Date: 20091021
  Transmission Date: 20100525
  Serious: Yes (Life-Threatening, Hospitalization)
  Sender: FDA-Public Use
  Company Number: None

PATIENT
  Age: 67 Year
  Sex: Female

DRUGS (19)
  1. SIMETHICONE PARMED [Suspect]
     Dosage: ONCE PO
     Route: 048
     Dates: start: 20090421, end: 20090421
  2. ALPRAZOLAM [Concomitant]
  3. MAXALT [Concomitant]
  4. SIMVASTATIN [Concomitant]
  5. DICLOFENAC, [Concomitant]
  6. VICODIN [Concomitant]
  7. IBUPROFEN [Concomitant]
  8. MISOPROSTIL [Concomitant]
  9. EZETIMIBE [Concomitant]
  10. ENABLEX [Concomitant]
  11. PROPRANOLOL [Concomitant]
  12. OMEPRAZOLE [Concomitant]
  13. TRAMADOL HCL [Concomitant]
  14. BUPROPION HCL [Concomitant]
  15. ASPIRIN [Concomitant]
  16. DOCUSATE [Concomitant]
  17. M.V.I. [Concomitant]
  18. VIACTIVE [Concomitant]
  19. MUCINEX [Concomitant]

REACTIONS (1)
  - ANGIOEDEMA [None]
